FAERS Safety Report 8321206-5 (Version None)
Quarter: 2012Q2

REPORT INFORMATION
  Report Type: 
  Country: None (occurrence: None)
  Receive Date: 20120430
  Receipt Date: 20120423
  Transmission Date: 20120825
  Serious: Yes (Hospitalization)
  Sender: FDA-Public Use
  Company Number: FR-JNJFOC-20111103117

PATIENT
  Sex: Female

DRUGS (12)
  1. HALDOL [Suspect]
     Indication: PRODUCT USED FOR UNKNOWN INDICATION
     Route: 065
  2. ZOLPIDEM TARTRATE [Concomitant]
     Route: 065
  3. XANAX [Suspect]
     Indication: PRODUCT USED FOR UNKNOWN INDICATION
     Route: 048
  4. LORAZEPAM [Suspect]
     Indication: PRODUCT USED FOR UNKNOWN INDICATION
     Route: 048
  5. DEPAKOTE [Suspect]
     Indication: PRODUCT USED FOR UNKNOWN INDICATION
     Route: 048
  6. ATENOLOL [Concomitant]
     Route: 065
  7. LEPTICUR [Concomitant]
     Route: 048
  8. ALVERINE [Concomitant]
     Route: 065
  9. SINGULAIR [Concomitant]
     Route: 065
  10. LISINOPRIL [Concomitant]
     Route: 048
  11. ESIDRIX [Concomitant]
     Route: 048
  12. ATARAX [Concomitant]
     Route: 065

REACTIONS (3)
  - HYPOTHERMIA [None]
  - BRADYCARDIA [None]
  - FALL [None]
